FAERS Safety Report 4716376-1 (Version None)
Quarter: 2005Q3

REPORT INFORMATION
  Report Type: 
  Country: None (occurrence: None)
  Receive Date: 20050714
  Receipt Date: 20050705
  Transmission Date: 20060218
  Serious: Yes (Hospitalization)
  Sender: FDA-Public Use
  Company Number: 05-07-1175

PATIENT
  Age: 74 Year
  Sex: Female

DRUGS (1)
  1. CLOZAPINE [Suspect]
     Indication: SCHIZOPHRENIA
     Dosage: 75-100MG QD ORAL
     Route: 048
     Dates: start: 20031001

REACTIONS (2)
  - HIP FRACTURE [None]
  - PELVIC FRACTURE [None]
